FAERS Safety Report 12200845 (Version 3)
Quarter: 2016Q2

REPORT INFORMATION
  Report Type: Spontaneous
  Country: US (occurrence: US)
  Receive Date: 20160322
  Receipt Date: 20160422
  Transmission Date: 20160815
  Serious: No
  Sender: FDA-Public Use
  Company Number: US-PFIZER INC-2016132731

PATIENT
  Age: 53 Year
  Sex: Female
  Weight: 79 kg

DRUGS (2)
  1. ESTRING [Suspect]
     Active Substance: ESTRADIOL
     Indication: VULVOVAGINAL BURNING SENSATION
     Dosage: 7.5 UG/ 24 HOURS, EVERY 3 MONTHS (90 DAYS)
     Route: 067
     Dates: start: 20160227, end: 20160227
  2. ESTRING [Suspect]
     Active Substance: ESTRADIOL
     Indication: VULVOVAGINAL DRYNESS
     Dosage: 2 MG, UNK(PUT INTO VAGINA FOR ONE MONTH.)
     Route: 067
     Dates: start: 20160222, end: 20160222

REACTIONS (4)
  - Product quality issue [Unknown]
  - Vulvovaginal discomfort [Unknown]
  - Skin discolouration [Unknown]
  - Headache [Recovered/Resolved]

NARRATIVE: CASE EVENT DATE: 20160227
